FAERS Safety Report 24926930 (Version 1)
Quarter: 2025Q1

REPORT INFORMATION
  Report Type: Spontaneous
  Country: US (occurrence: US)
  Receive Date: 20250205
  Receipt Date: 20250205
  Transmission Date: 20250409
  Serious: No
  Sender: TAKEDA
  Company Number: US-TAKEDA-2025TUS011867

PATIENT
  Sex: Male
  Weight: 104 kg

DRUGS (2)
  1. VYVANSE [Suspect]
     Active Substance: LISDEXAMFETAMINE DIMESYLATE
     Indication: Attention deficit hyperactivity disorder
  2. PAROXETINE [Concomitant]
     Active Substance: PAROXETINE
     Indication: Depression

REACTIONS (6)
  - Insurance issue [Unknown]
  - Inability to afford medication [Unknown]
  - Inappropriate schedule of product administration [Unknown]
  - Sluggishness [Unknown]
  - Depressed mood [Unknown]
  - Agitation [Unknown]
